FAERS Safety Report 9285961 (Version 2)
Quarter: 2013Q2

REPORT INFORMATION
  Report Type: Report from Study
  Country: DE (occurrence: DE)
  Receive Date: 20130513
  Receipt Date: 20130521
  Transmission Date: 20140414
  Serious: Yes (Death, Hospitalization)
  Sender: FDA-Public Use
  Company Number: DE-ROCHE-1221577

PATIENT
  Age: 66 Year
  Sex: Female
  Weight: 53 kg

DRUGS (5)
  1. PERTUZUMAB [Suspect]
     Indication: BREAST CANCER METASTATIC
     Route: 042
     Dates: start: 20121210, end: 20130415
  2. TRASTUZUMAB [Suspect]
     Indication: BREAST CANCER METASTATIC
     Route: 042
     Dates: start: 20121210, end: 20130415
  3. EXEMESTANE [Suspect]
     Indication: BREAST CANCER METASTATIC
     Route: 048
     Dates: start: 20130124
  4. ARANESP [Concomitant]
     Indication: PROPHYLAXIS
     Route: 058
     Dates: start: 20130404, end: 20130415
  5. FERINJECT [Concomitant]
     Indication: PROPHYLAXIS
     Route: 042
     Dates: start: 20130404, end: 20130415

REACTIONS (2)
  - General physical health deterioration [Fatal]
  - Paresis [Recovered/Resolved]
